FAERS Safety Report 16666851 (Version 1)
Quarter: 2019Q3

REPORT INFORMATION
  Report Type: Spontaneous
  Country: NL (occurrence: NL)
  Receive Date: 20190805
  Receipt Date: 20190805
  Transmission Date: 20191004
  Serious: Yes (Other)
  Sender: FDA-Public Use
  Company Number: NL-BRISTOL-MYERS SQUIBB COMPANY-BMS-2019-074701

PATIENT
  Sex: Female
  Weight: 54 kg

DRUGS (2)
  1. HUMIRA AC [Concomitant]
     Active Substance: ADALIMUMAB
     Indication: RHEUMATIC DISORDER
     Dosage: 4 DOSAGE FORM=4 INJECTIONS
     Route: 065
  2. KENACORT-A [Suspect]
     Active Substance: TRIAMCINOLONE ACETONIDE
     Indication: RHEUMATIC DISORDER
     Dosage: 40 MILLIGRAM X 2
     Route: 065
     Dates: start: 20180706, end: 20180706

REACTIONS (1)
  - Injection site indentation [Not Recovered/Not Resolved]
